FAERS Safety Report 6954673-X (Version None)
Quarter: 2010Q3

REPORT INFORMATION
  Report Type: 
  Country: None (occurrence: None)
  Receive Date: 20100829
  Receipt Date: 20100723
  Transmission Date: 20110219
  Serious: No
  Sender: FDA-Public Use
  Company Number: US-ABBOTT-10P-163-0659807-00

PATIENT
  Sex: Male
  Weight: 82.174 kg

DRUGS (1)
  1. NIASPAN [Suspect]
     Indication: LOW DENSITY LIPOPROTEIN INCREASED
     Dosage: AT BED TIME
     Dates: start: 20100719

REACTIONS (2)
  - MYALGIA [None]
  - PARAESTHESIA [None]
